FAERS Safety Report 16232862 (Version 1)
Quarter: 2019Q2

REPORT INFORMATION
  Report Type: Spontaneous
  Country: US (occurrence: US)
  Receive Date: 20190319
  Receipt Date: 20190319
  Transmission Date: 20190711
  Serious: No
  Sender: FDA-Public Use
  Company Number: None

PATIENT
  Age: 66 Year
  Sex: Female

DRUGS (1)
  1. ZOLEDRONIC ACID SDV 5MG/100ML [Suspect]
     Active Substance: ZOLEDRONIC ACID
     Dates: start: 201902

REACTIONS (5)
  - Gait inability [None]
  - Myalgia [None]
  - Arthralgia [None]
  - Musculoskeletal pain [None]
  - Peripheral swelling [None]

NARRATIVE: CASE EVENT DATE: 20190319
